FAERS Safety Report 9176998 (Version 1)
Quarter: 2013Q1

REPORT INFORMATION
  Report Type: Spontaneous
  Country: US (occurrence: None)
  Receive Date: 20130320
  Receipt Date: 20130320
  Transmission Date: 20140127
  Serious: Yes (Other)
  Sender: FDA-Public Use
  Company Number: None

PATIENT
  Age: 60 Year
  Sex: Female

DRUGS (9)
  1. TAMIFLU [Suspect]
     Indication: INFLUENZA
     Route: 048
     Dates: start: 20130315, end: 20130319
  2. ECHINACEA [Concomitant]
  3. ASPIRIN [Concomitant]
  4. FISH OIL [Concomitant]
  5. CALCIUM WITH VITAMIN [Concomitant]
  6. MULTIVITAMIN [Concomitant]
  7. GLUCOSAMINE [Concomitant]
  8. CHONDROITIN [Concomitant]
  9. ZINC [Concomitant]

REACTIONS (10)
  - Chromaturia [None]
  - Urine odour abnormal [None]
  - Paraesthesia [None]
  - Hypoaesthesia [None]
  - Chapped lips [None]
  - Lip dry [None]
  - Pruritus generalised [None]
  - Pain [None]
  - Tremor [None]
  - Myalgia [None]
